FAERS Safety Report 10264250 (Version 1)
Quarter: 2014Q2

REPORT INFORMATION
  Report Type: Spontaneous
  Country: US (occurrence: None)
  Receive Date: 20140624
  Receipt Date: 20140624
  Transmission Date: 20141212
  Serious: Yes (Other)
  Sender: FDA-Public Use
  Company Number: None

PATIENT
  Age: 46 Year
  Sex: Female
  Weight: 99.79 kg

DRUGS (2)
  1. FENTANYL PATCH [Suspect]
     Indication: ABDOMINAL PAIN LOWER
     Dosage: 1 PATCH, EVERY 72 HOURS, APPLIED AS MEDICATED PATCH TO SKIN
     Dates: start: 20140618, end: 20140620
  2. FENTANYL PATCH [Suspect]
     Indication: NERVE INJURY
     Dosage: 1 PATCH, EVERY 72 HOURS, APPLIED AS MEDICATED PATCH TO SKIN
     Dates: start: 20140618, end: 20140620

REACTIONS (4)
  - Application site paraesthesia [None]
  - Application site pain [None]
  - Insomnia [None]
  - Application site vesicles [None]
